FAERS Safety Report 7267991-5 (Version None)
Quarter: 2011Q1

REPORT INFORMATION
  Report Type: 
  Country: None (occurrence: None)
  Receive Date: 20110201
  Receipt Date: 20110125
  Transmission Date: 20110831
  Serious: Yes (Death, Life-Threatening, Hospitalization)
  Sender: FDA-Public Use
  Company Number: FR-BAXTER-2011BH002274

PATIENT
  Age: 55 Year
  Sex: Male

DRUGS (5)
  1. CYCLOPHOSPHAMIDE [Suspect]
     Route: 048
     Dates: start: 19970601, end: 19980101
  2. CYCLOPHOSPHAMIDE [Suspect]
     Indication: WEGENER'S GRANULOMATOSIS
     Route: 042
     Dates: start: 19960501, end: 19961101
  3. UROMITEXAN [Concomitant]
     Indication: PRODUCT USED FOR UNKNOWN INDICATION
     Route: 065
     Dates: start: 19960501, end: 19961101
  4. CORTICOSTEROIDS [Concomitant]
     Indication: WEGENER'S GRANULOMATOSIS
     Route: 065
     Dates: start: 19960501, end: 19961101
  5. CYCLOPHOSPHAMIDE [Suspect]
     Indication: WEGENER'S GRANULOMATOSIS
     Route: 048
     Dates: start: 19980101, end: 19980917

REACTIONS (3)
  - METASTASES TO BONE [None]
  - METASTASES TO LUNG [None]
  - BLADDER CANCER [None]
